FAERS Safety Report 5915437-9 (Version None)
Quarter: 2008Q4

REPORT INFORMATION
  Report Type: 
  Country: None (occurrence: None)
  Receive Date: 20081010
  Receipt Date: 20081008
  Transmission Date: 20090506
  Serious: Yes (Other)
  Sender: FDA-Public Use
  Company Number: US-ELI_LILLY_AND_COMPANY-US200810002113

PATIENT
  Sex: Female

DRUGS (4)
  1. HUMALOG [Suspect]
     Dosage: UNK, UNK
     Dates: start: 19900101
  2. HUMALOG [Suspect]
     Dosage: UNK, UNK
     Dates: start: 19900101
  3. POTASSIUM CHLORIDE [Concomitant]
  4. ASPIRIN [Concomitant]

REACTIONS (4)
  - DRUG DISPENSING ERROR [None]
  - TRANSIENT ISCHAEMIC ATTACK [None]
  - VISUAL ACUITY REDUCED [None]
  - VISUAL IMPAIRMENT [None]
